FAERS Safety Report 19405188 (Version 5)
Quarter: 2022Q1

REPORT INFORMATION
  Report Type: Spontaneous
  Country: IL (occurrence: IL)
  Receive Date: 20210611
  Receipt Date: 20220204
  Transmission Date: 20220423
  Serious: Yes (Hospitalization, Disabling, Other)
  Sender: FDA-Public Use
  Company Number: IL-CELGENE-ISR-20210407544

PATIENT
  Age: 51 Year
  Sex: Female
  Weight: 63 kg

DRUGS (12)
  1. AZACITIDINE [Suspect]
     Active Substance: AZACITIDINE
     Indication: Acute myeloid leukaemia
     Dosage: 20 MILLIGRAM/SQ. METER
     Route: 058
     Dates: start: 20201011
  2. VENETOCLAX [Suspect]
     Active Substance: VENETOCLAX
     Indication: Acute myeloid leukaemia
     Dosage: 100 MILLIGRAM
     Route: 048
     Dates: start: 20201011, end: 20210412
  3. LAMIVUDINE [Concomitant]
     Active Substance: LAMIVUDINE
     Indication: Antiviral prophylaxis
     Dosage: 100 MILLIGRAM
     Route: 048
     Dates: start: 2020
  4. FLUCONAZOLE [Concomitant]
     Active Substance: FLUCONAZOLE
     Indication: Antifungal prophylaxis
     Dosage: 150 MILLIGRAM
     Route: 048
     Dates: start: 202009
  5. RAFAPEN [Concomitant]
     Indication: Antibiotic prophylaxis
     Dosage: 500 MILLIGRAM
     Route: 048
     Dates: start: 202009
  6. SULFAMETHOXAZOLE\TRIMETHOPRIM [Concomitant]
     Active Substance: SULFAMETHOXAZOLE\TRIMETHOPRIM
     Indication: Antibiotic prophylaxis
     Route: 048
     Dates: start: 202009
  7. ACYCLOVIR [Concomitant]
     Active Substance: ACYCLOVIR
     Indication: Antiviral prophylaxis
     Dosage: 400 MILLIGRAM
     Route: 048
     Dates: start: 202009
  8. PRAMIN [Concomitant]
     Indication: Nausea
     Route: 048
     Dates: start: 20201108
  9. MAGNESIUM OXIDE [Concomitant]
     Active Substance: MAGNESIUM OXIDE
     Indication: Hypomagnesaemia
     Dosage: 520 MILLIGRAM
     Route: 048
     Dates: start: 202007, end: 20201101
  10. MAGNESIUM OXIDE [Concomitant]
     Active Substance: MAGNESIUM OXIDE
     Dosage: 3120 MILLIGRAM
     Route: 048
     Dates: start: 20201101, end: 20210228
  11. MAGNESIUM OXIDE [Concomitant]
     Active Substance: MAGNESIUM OXIDE
     Dosage: 1560 MILLIGRAM
     Route: 048
     Dates: start: 20210301
  12. BIPERIDEN [Concomitant]
     Active Substance: BIPERIDEN
     Indication: Product used for unknown indication
     Route: 065

REACTIONS (4)
  - Confusional state [Not Recovered/Not Resolved]
  - Platelet count decreased [Recovered/Resolved]
  - Neutropenia [Recovered/Resolved]
  - Platelet count decreased [Not Recovered/Not Resolved]

NARRATIVE: CASE EVENT DATE: 20210419
